FAERS Safety Report 8778839 (Version 1)
Quarter: 2012Q4

REPORT INFORMATION
  Report Type: 
  Country: US (occurrence: US)
  Receive Date: 20120912
  Receipt Date: 20120912
  Transmission Date: 20130627
  Serious: Yes (Other)
  Sender: FDA-Public Use
  Company Number: US-UCBSA-064822

PATIENT
  Age: 57 Year
  Sex: Female

DRUGS (3)
  1. VIMPAT [Suspect]
  2. KEPPRA [Suspect]
  3. GABAPENTIN [Suspect]

REACTIONS (1)
  - Bradycardia [Unknown]
